FAERS Safety Report 7262370-9 (Version None)
Quarter: 2011Q1

REPORT INFORMATION
  Report Type: 
  Country: None (occurrence: None)
  Receive Date: 20110130
  Receipt Date: 20101109
  Transmission Date: 20110831
  Serious: No
  Sender: FDA-Public Use
  Company Number: US-ABBOTT-10P-163-0684432-00

PATIENT
  Age: 42 Year
  Sex: Male

DRUGS (6)
  1. HUMIRA [Suspect]
  2. DIPENTUM [Concomitant]
     Indication: CROHN'S DISEASE
  3. WELCONOL [Concomitant]
     Indication: PRODUCT USED FOR UNKNOWN INDICATION
     Dates: start: 20070101
  4. LONOX [Concomitant]
     Indication: DIARRHOEA
     Dates: start: 20070101
  5. HUMIRA [Suspect]
     Indication: CROHN'S DISEASE
     Dosage: DAY 1
     Dates: start: 20101101
  6. HUMIRA [Suspect]
     Dosage: DAY 15

REACTIONS (2)
  - HYPERHIDROSIS [None]
  - PRURITUS [None]
